FAERS Safety Report 8560207-9 (Version None)
Quarter: 2012Q3

REPORT INFORMATION
  Report Type: 
  Country: None (occurrence: None)
  Receive Date: 20120802
  Receipt Date: 20120727
  Transmission Date: 20120928
  Serious: Yes (Life-Threatening)
  Sender: FDA-Public Use
  Company Number: US-CELGENEUS-163-21880-12073064

PATIENT
  Sex: Male
  Weight: 95.34 kg

DRUGS (7)
  1. DEXAMETHASONE [Concomitant]
     Route: 065
  2. UROXATRAL [Concomitant]
     Route: 065
  3. COUMADIN [Concomitant]
     Route: 065
     Dates: start: 20120701
  4. FISH OIL [Concomitant]
     Route: 065
  5. REVLIMID [Suspect]
     Indication: MULTIPLE MYELOMA
     Dosage: 25 MILLIGRAM
     Route: 048
     Dates: start: 20120601
  6. PREVACID [Concomitant]
     Route: 065
  7. REVLIMID [Suspect]
     Dosage: 25 MILLIGRAM
     Route: 048
     Dates: start: 20120701, end: 20120710

REACTIONS (1)
  - PULMONARY EMBOLISM [None]
